FAERS Safety Report 6848890-7 (Version None)
Quarter: 2010Q3

REPORT INFORMATION
  Report Type: 
  Country: None (occurrence: None)
  Receive Date: 20100716
  Receipt Date: 20070924
  Transmission Date: 20110219
  Serious: No
  Sender: FDA-Public Use
  Company Number: US-PFIZER INC-2007080828

PATIENT
  Age: 75 Year
  Sex: Female
  Weight: 43.2 kg

DRUGS (3)
  1. CHANTIX [Suspect]
     Indication: SMOKING CESSATION THERAPY
     Route: 048
     Dates: start: 20070915
  2. FOSAMAX [Concomitant]
     Route: 048
  3. LORAZEPAM [Concomitant]
     Indication: INSOMNIA
     Route: 048

REACTIONS (8)
  - CONSTIPATION [None]
  - DECREASED APPETITE [None]
  - INSOMNIA [None]
  - NAUSEA [None]
  - PRURITUS [None]
  - SCRATCH [None]
  - VOMITING [None]
  - WEIGHT DECREASED [None]
